FAERS Safety Report 7460080-6 (Version None)
Quarter: 2011Q2

REPORT INFORMATION
  Report Type: 
  Country: None (occurrence: None)
  Receive Date: 20110427
  Receipt Date: 20110408
  Transmission Date: 20111010
  Serious: Yes (Other)
  Sender: FDA-Public Use
  Company Number: 2011SP016024

PATIENT
  Age: 64 Year
  Sex: Female

DRUGS (4)
  1. PROPRANOLOL [Concomitant]
  2. ZYRTEC [Concomitant]
  3. REMERON [Suspect]
     Indication: DEPRESSION
     Dosage: 15 MG;QD;PO
     Route: 048
  4. SPIRIVA [Concomitant]

REACTIONS (1)
  - TORTICOLLIS [None]
